FAERS Safety Report 7359303-3 (Version None)
Quarter: 2011Q1

REPORT INFORMATION
  Report Type: 
  Country: None (occurrence: None)
  Receive Date: 20110317
  Receipt Date: 20090806
  Transmission Date: 20110831
  Serious: No
  Sender: FDA-Public Use
  Company Number: US-PFIZER INC-2009239755

PATIENT
  Sex: Female
  Weight: 90.703 kg

DRUGS (4)
  1. TOPROL-XL [Concomitant]
     Indication: HYPERTENSION
     Dosage: 150 MG, 1X/DAY
     Route: 048
  2. TAMBOCOR [Interacting]
     Indication: ARRHYTHMIA
     Dosage: 15 MG, 1X/DAY
     Route: 048
  3. VYTORIN [Concomitant]
     Indication: BLOOD CHOLESTEROL INCREASED
     Dosage: [EZETIMIBE 10MG]/[SIMVASTATIN 20MG]
     Route: 048
  4. NORVASC [Suspect]
     Indication: HYPERTENSION
     Dosage: 5 MG, 1X/DAY
     Route: 048
     Dates: start: 20040101

REACTIONS (2)
  - DRUG INTERACTION [None]
  - BLOOD PRESSURE FLUCTUATION [None]
